FAERS Safety Report 8334056-0 (Version None)
Quarter: 2012Q1

REPORT INFORMATION
  Report Type: 
  Country: None (occurrence: None)
  Receive Date: 20120328
  Receipt Date: 20100414
  Transmission Date: 20120608
  Serious: Yes (Other)
  Sender: FDA-Public Use
  Company Number: PHHY2010US23539

PATIENT
  Age: 85 Year
  Sex: Male

DRUGS (6)
  1. VALTURNA [Suspect]
  2. ESCITALOPRAM OXALATE [Suspect]
  3. ASPIRIN [Concomitant]
  4. CARVEDILOL [Concomitant]
  5. TEMAZEPAM [Concomitant]
  6. VALSARTAN [Concomitant]

REACTIONS (1)
  - BLOOD PRESSURE INADEQUATELY CONTROLLED [None]
